FAERS Safety Report 9786238 (Version 3)
Quarter: 2014Q1

REPORT INFORMATION
  Report Type: Spontaneous
  Country: US (occurrence: US)
  Receive Date: 20131227
  Receipt Date: 20140227
  Transmission Date: 20141002
  Serious: No
  Sender: FDA-Public Use
  Company Number: US-PFIZER INC-2013347455

PATIENT
  Age: 63 Year
  Sex: Female

DRUGS (26)
  1. LOMOTIL [Suspect]
     Indication: DIARRHOEA
     Dosage: UNK, EVERY 4 HOURS
  2. IMODIUM A-D [Suspect]
     Indication: DIARRHOEA
     Dosage: UNK
  3. PLAVIX [Concomitant]
     Dosage: UNK
  4. XARELTO [Concomitant]
  5. ASPIRINE [Concomitant]
  6. ZOFRAN [Concomitant]
     Dosage: UNK
  7. COMPAZINE [Concomitant]
     Dosage: UNK
  8. PROTONIX [Concomitant]
     Dosage: UNK
  9. TAGAMET [Concomitant]
     Dosage: UNK
  10. METOPROLOL [Concomitant]
     Dosage: UNK
  11. RECLAST [Concomitant]
     Dosage: MONTHLY
  12. DOXEPIN [Concomitant]
     Dosage: UNK
  13. ALBUTEROL [Concomitant]
     Dosage: UNK
  14. REQUIP [Concomitant]
     Dosage: UNK
  15. TEMAZEPAM [Concomitant]
     Dosage: UNK
  16. VIT D3 [Concomitant]
     Dosage: UNK
  17. PRIMIDONE [Concomitant]
     Dosage: UNK
  18. ROXICODONE [Concomitant]
     Dosage: UNK
  19. LIPITOR [Concomitant]
     Dosage: UNK
  20. LASIX [Concomitant]
     Dosage: UNK, PRN
  21. OXYGEN [Concomitant]
     Dosage: CONTINUOUS AT NIGHT
  22. SPIRIVA [Concomitant]
     Dosage: UNK
  23. VENTOLIN [Concomitant]
     Dosage: UNK
  24. NYSTATIN [Concomitant]
     Dosage: UNK
  25. DULCOLAX [Concomitant]
     Dosage: UNK
  26. OXYCONTIN [Concomitant]
     Dosage: UNK

REACTIONS (1)
  - Drug ineffective [Not Recovered/Not Resolved]
